FAERS Safety Report 18973633 (Version 1)
Quarter: 2021Q1

REPORT INFORMATION
  Report Type: Spontaneous
  Country: US (occurrence: US)
  Receive Date: 20210305
  Receipt Date: 20210305
  Transmission Date: 20210420
  Serious: No
  Sender: FDA-Public Use
  Company Number: None

PATIENT
  Age: 78 Year
  Sex: Male

DRUGS (2)
  1. VELTASSA [Suspect]
     Active Substance: PATIROMER
     Indication: HYPERKALAEMIA
     Route: 048
     Dates: start: 20190523, end: 20201210
  2. VELTASSA [Concomitant]
     Active Substance: PATIROMER
     Dates: start: 20190523, end: 20201210

REACTIONS (1)
  - Death [None]

NARRATIVE: CASE EVENT DATE: 20210305
